FAERS Safety Report 25419596 (Version 1)
Quarter: 2025Q2

REPORT INFORMATION
  Report Type: Report from Study
  Country: DE (occurrence: DE)
  Receive Date: 20250610
  Receipt Date: 20250610
  Transmission Date: 20250717
  Serious: Yes (Congenital Anomaly, Other)
  Sender: UCB
  Company Number: DE-UCBSA-2025033794

PATIENT
  Sex: Female

DRUGS (1)
  1. CERTOLIZUMAB PEGOL [Suspect]
     Active Substance: CERTOLIZUMAB PEGOL
     Indication: Axial spondyloarthritis

REACTIONS (1)
  - Pulmonary valve stenosis congenital [Unknown]

NARRATIVE: CASE EVENT DATE: 20210606
